FAERS Safety Report 6915492-3 (Version None)
Quarter: 2010Q3

REPORT INFORMATION
  Report Type: 
  Country: None (occurrence: None)
  Receive Date: 20100806
  Receipt Date: 20100806
  Transmission Date: 20110219
  Serious: Yes (Hospitalization)
  Sender: FDA-Public Use
  Company Number: None

PATIENT
  Age: 85 Year
  Sex: Male
  Weight: 79 kg

DRUGS (3)
  1. PRAZOSIN HCL [Suspect]
     Indication: URINARY TRACT DISORDER
     Dosage: 1 MG HS PO
     Route: 048
     Dates: start: 20071104, end: 20091129
  2. HYDROCHLOROTHIAZIDE [Suspect]
     Indication: HYPERTENSION
     Dosage: 25 MG AM PO
     Route: 048
     Dates: start: 20091128, end: 20091129
  3. COZAAR [Suspect]

REACTIONS (1)
  - ORTHOSTATIC HYPOTENSION [None]
